FAERS Safety Report 12375431 (Version 1)
Quarter: 2016Q2

REPORT INFORMATION
  Report Type: Spontaneous
  Country: US (occurrence: US)
  Receive Date: 20160517
  Receipt Date: 20160517
  Transmission Date: 20160815
  Serious: Yes (Other)
  Sender: FDA-Public Use
  Company Number: US-WATSON-2016-10180

PATIENT
  Age: 58 Year
  Sex: Female

DRUGS (1)
  1. MORPHINE ER (AELLC) [Suspect]
     Active Substance: MORPHINE
     Indication: PRODUCT USED FOR UNKNOWN INDICATION
     Dosage: UNKNOWN
     Route: 048

REACTIONS (2)
  - Respiratory failure [Unknown]
  - Overdose [Unknown]

NARRATIVE: CASE EVENT DATE: 20090802
